FAERS Safety Report 8383012-5 (Version None)
Quarter: 2012Q2

REPORT INFORMATION
  Report Type: 
  Country: None (occurrence: None)
  Receive Date: 20120524
  Receipt Date: 20120517
  Transmission Date: 20120825
  Serious: Yes (Death, Other)
  Sender: FDA-Public Use
  Company Number: PHHY2012KR043864

PATIENT
  Age: 58 Year
  Sex: Female

DRUGS (12)
  1. DASATINIB [Suspect]
     Dosage: 70 MG, BID
  2. DEXAMETHASONE [Concomitant]
  3. IMATINIB MESYLATE [Suspect]
     Indication: ACUTE LYMPHOCYTIC LEUKAEMIA
     Dosage: 600 MG, DAILY
  4. MITOXANTRONE [Concomitant]
  5. IMATINIB MESYLATE [Suspect]
     Dosage: 600 MG, QD
  6. DASATINIB [Suspect]
     Dosage: 100 MG, QD
  7. DASATINIB [Suspect]
     Dosage: UNK UKN, UNK
  8. CYCLOPHOSPHAMIDE [Concomitant]
  9. VINCRISTINE [Concomitant]
  10. IDARUBICIN HCL [Concomitant]
  11. DASATINIB [Suspect]
     Dosage: UNK UKN, UNK
  12. CYTARABINE [Concomitant]

REACTIONS (10)
  - SUBDURAL HAEMORRHAGE [None]
  - NEOPLASM MALIGNANT [None]
  - HEADACHE [None]
  - NEOPLASM PROGRESSION [None]
  - BLAST CELLS PRESENT [None]
  - THROMBOCYTOPENIA [None]
  - ANAEMIA [None]
  - PNEUMONIA [None]
  - LEUKOCYTOSIS [None]
  - CYTOGENETIC ABNORMALITY [None]
